FAERS Safety Report 25181479 (Version 4)
Quarter: 2025Q2

REPORT INFORMATION
  Report Type: Spontaneous
  Country: JP (occurrence: JP)
  Receive Date: 20250410
  Receipt Date: 20250604
  Transmission Date: 20250717
  Serious: Yes (Other)
  Sender: AMGEN
  Company Number: JP-AMGEN-JPNSP2024251226

PATIENT
  Age: 74 Year
  Sex: Female

DRUGS (5)
  1. BLINCYTO [Suspect]
     Active Substance: BLINATUMOMAB
     Indication: Acute lymphocytic leukaemia
     Route: 040
     Dates: start: 20241219, end: 20250114
  2. BLINCYTO [Suspect]
     Active Substance: BLINATUMOMAB
     Indication: Philadelphia chromosome negative
     Route: 040
     Dates: start: 20250130, end: 2025
  3. BLINCYTO [Suspect]
     Active Substance: BLINATUMOMAB
     Route: 040
     Dates: start: 20250313, end: 20250331
  4. BLINCYTO [Suspect]
     Active Substance: BLINATUMOMAB
     Route: 040
     Dates: start: 20250430, end: 202505
  5. BLINCYTO [Suspect]
     Active Substance: BLINATUMOMAB
     Route: 040
     Dates: start: 202505, end: 20250527

REACTIONS (3)
  - Myelosuppression [Recovered/Resolved]
  - Cytokine release syndrome [Recovered/Resolved]
  - Hepatic function abnormal [Recovered/Resolved]

NARRATIVE: CASE EVENT DATE: 20241220
